FAERS Safety Report 25616339 (Version 2)
Quarter: 2025Q3

REPORT INFORMATION
  Report Type: Spontaneous
  Country: EU (occurrence: EU)
  Receive Date: 20250729
  Receipt Date: 20250820
  Transmission Date: 20251020
  Serious: Yes (Other)
  Sender: AUROBINDO
  Company Number: EU-SUN PHARMACEUTICAL INDUSTRIES LTD-2025R1-519511

PATIENT
  Age: 64 Year
  Sex: Female

DRUGS (6)
  1. FLUOXETINE [Interacting]
     Active Substance: FLUOXETINE HYDROCHLORIDE
     Indication: Depression
     Route: 065
  2. FLUOXETINE [Interacting]
     Active Substance: FLUOXETINE HYDROCHLORIDE
     Indication: Hypertension
  3. DOXYLAMINE [Interacting]
     Active Substance: DOXYLAMINE
     Indication: Sleep disorder
     Route: 065
  4. DOXYLAMINE [Interacting]
     Active Substance: DOXYLAMINE
     Route: 065
  5. INDAPAMIDE\TELMISARTAN [Suspect]
     Active Substance: INDAPAMIDE\TELMISARTAN
     Indication: Depression
     Route: 065
  6. INDAPAMIDE\TELMISARTAN [Suspect]
     Active Substance: INDAPAMIDE\TELMISARTAN
     Indication: Hypertension

REACTIONS (4)
  - Dysuria [Unknown]
  - Enterococcal infection [Unknown]
  - Drug interaction [Unknown]
  - Therapeutic product effect incomplete [Unknown]
